FAERS Safety Report 8182790-8 (Version None)
Quarter: 2012Q1

REPORT INFORMATION
  Report Type: 
  Country: None (occurrence: None)
  Receive Date: 20120305
  Receipt Date: 20120227
  Transmission Date: 20120608
  Serious: Yes (Death, Hospitalization, Disabling)
  Sender: FDA-Public Use
  Company Number: FR-CELGENEUS-056-C5013-11013010

PATIENT
  Sex: Female
  Weight: 66.3 kg

DRUGS (8)
  1. PREVISCAN [Concomitant]
     Indication: ARRHYTHMIA
  2. DEXAMETHASONE [Suspect]
     Dosage: 20 MILLIGRAM
     Route: 065
     Dates: start: 20110104, end: 20110112
  3. CIPRALAN [Concomitant]
     Indication: ATRIAL FIBRILLATION
     Route: 065
  4. LENALIDOMIDE [Suspect]
     Indication: MULTIPLE MYELOMA
     Dosage: 25 MILLIGRAM
     Route: 048
     Dates: start: 20101207
  5. LENALIDOMIDE [Suspect]
     Dosage: 25 MILLIGRAM
     Route: 048
     Dates: start: 20110104, end: 20110112
  6. DEXAMETHASONE [Suspect]
     Indication: MULTIPLE MYELOMA
     Dosage: 20 MILLIGRAM
     Route: 065
     Dates: start: 20101207
  7. PREVISCAN [Concomitant]
     Indication: ATRIAL FIBRILLATION
     Route: 048
     Dates: start: 20090101
  8. PREVISCAN [Concomitant]
     Indication: THROMBOSIS PROPHYLAXIS

REACTIONS (4)
  - EUPHORIC MOOD [None]
  - REPETITIVE SPEECH [None]
  - STAPHYLOCOCCAL SEPSIS [None]
  - DIABETES MELLITUS [None]
